FAERS Safety Report 10655690 (Version 1)
Quarter: 2014Q4

REPORT INFORMATION
  Report Type: Spontaneous
  Country: US (occurrence: None)
  Receive Date: 20141205
  Receipt Date: 20141205
  Transmission Date: 20150529
  Serious: Yes (Hospitalization, Other)
  Sender: FDA-Public Use
  Company Number: 163-POMAL-14082106

PATIENT
  Age: 60 Year
  Sex: Male

DRUGS (7)
  1. ACYCLOVIR (ACICLOVIR) (ACICLOVIR) [Concomitant]
     Active Substance: ACYCLOVIR
  2. POMALYST [Suspect]
     Active Substance: POMALIDOMIDE
     Indication: PLASMA CELL MYELOMA
     Dosage: 2 MG,  21 IN 28 D, PO
     Route: 048
     Dates: start: 201310, end: 20140806
  3. SCOPOLAMINE (HYOSCINE) [Concomitant]
  4. FUROSEMIDE (FUROSEMIDE) [Concomitant]
     Active Substance: FUROSEMIDE
  5. HYDROMORPHONE (HYDROMORPHONE) [Concomitant]
     Active Substance: HYDROMORPHONE
  6. ONDASETRON (ONDANSETRON) [Concomitant]
  7. ALTEPLASE (ALTEPLASE) [Concomitant]
     Active Substance: ALTEPLASE

REACTIONS (3)
  - Platelet count decreased [None]
  - Febrile neutropenia [None]
  - Red blood cell count decreased [None]

NARRATIVE: CASE EVENT DATE: 20140806
